FAERS Safety Report 17752703 (Version 2)
Quarter: 2020Q2

REPORT INFORMATION
  Report Type: Spontaneous
  Country: US (occurrence: US)
  Receive Date: 20200506
  Receipt Date: 20200519
  Transmission Date: 20200714
  Serious: Yes (Hospitalization)
  Sender: FDA-Public Use
  Company Number: US-PRINSTON PHARMACEUTICAL INC.-2020PRN00131

PATIENT
  Age: 80 Year
  Sex: Female
  Weight: 57.6 kg

DRUGS (8)
  1. DONEPEZIL HYDROCHLORIDE. [Suspect]
     Active Substance: DONEPEZIL HYDROCHLORIDE
     Dosage: 5 MG, 2X/DAY ^11 AM, 6 PM^
     Route: 048
     Dates: start: 201907
  2. NAMENDA [Concomitant]
     Active Substance: MEMANTINE HYDROCHLORIDE
     Dosage: 5 MG, 2X/DAY
  3. ZETIA [Concomitant]
     Active Substance: EZETIMIBE
  4. ATORVASTATIN [Concomitant]
     Active Substance: ATORVASTATIN
  5. DONEPEZIL HYDROCHLORIDE. [Suspect]
     Active Substance: DONEPEZIL HYDROCHLORIDE
     Indication: DEMENTIA ALZHEIMER^S TYPE
     Dosage: 5 MG, 1X/DAY
     Route: 048
     Dates: start: 201812, end: 201907
  6. CALCITRIOL. [Concomitant]
     Active Substance: CALCITRIOL
  7. LISINOPRIL. [Concomitant]
     Active Substance: LISINOPRIL
  8. AMLODIPINE [Concomitant]
     Active Substance: AMLODIPINE BESYLATE
     Dosage: UNK

REACTIONS (16)
  - Dizziness [Recovered/Resolved]
  - Staring [Not Recovered/Not Resolved]
  - Food refusal [Not Recovered/Not Resolved]
  - Confusional state [Recovered/Resolved]
  - Dementia [Not Recovered/Not Resolved]
  - Therapeutic product effect decreased [Not Recovered/Not Resolved]
  - Anger [Not Recovered/Not Resolved]
  - Therapeutic product effect incomplete [Recovered/Resolved]
  - Blood creatinine abnormal [Unknown]
  - Heart rate decreased [Not Recovered/Not Resolved]
  - Cardiomyopathy [Not Recovered/Not Resolved]
  - Constipation [Recovered/Resolved]
  - Atrial fibrillation [Recovered/Resolved]
  - Alopecia [Recovering/Resolving]
  - White blood cell disorder [Unknown]
  - Blood urea abnormal [Unknown]

NARRATIVE: CASE EVENT DATE: 2020
